FAERS Safety Report 21240573 (Version 2)
Quarter: 2022Q3

REPORT INFORMATION
  Report Type: Spontaneous
  Country: JP (occurrence: JP)
  Receive Date: 20220823
  Receipt Date: 20220910
  Transmission Date: 20221027
  Serious: Yes (Other)
  Sender: FDA-Public Use
  Company Number: JP-SA-2022SA343677

PATIENT
  Age: 63 Year
  Sex: Male

DRUGS (1)
  1. DUPIXENT [Suspect]
     Active Substance: DUPILUMAB
     Indication: Chronic rhinosinusitis with nasal polyps
     Dosage: DAILY DOSE: 300 MG
     Route: 058
     Dates: start: 20220706, end: 20220803

REACTIONS (2)
  - Cellulitis [Unknown]
  - Eosinophilic granulomatosis with polyangiitis [Unknown]

NARRATIVE: CASE EVENT DATE: 20220701
